FAERS Safety Report 7542873-X (Version None)
Quarter: 2011Q2

REPORT INFORMATION
  Report Type: 
  Country: None (occurrence: None)
  Receive Date: 20110613
  Receipt Date: 20110530
  Transmission Date: 20111010
  Serious: Yes (Hospitalization, Other)
  Sender: FDA-Public Use
  Company Number: PHHY2011CN48077

PATIENT
  Age: 36 Year
  Sex: Male

DRUGS (3)
  1. SEBIVO [Suspect]
     Indication: HEPATITIS B
     Dosage: 600 MG, QD
     Route: 048
  2. LAMIVUDINE [Concomitant]
     Dosage: 100 MG, QD
     Route: 048
  3. ADEFOVIR DIPIVOXIL KIT [Concomitant]
     Dosage: 10 MG, QD
     Route: 048

REACTIONS (12)
  - TROPONIN INCREASED [None]
  - PALPITATIONS [None]
  - BLOOD ALKALINE PHOSPHATASE INCREASED [None]
  - BLOOD CREATINE PHOSPHOKINASE MB [None]
  - BLOOD CREATINE PHOSPHOKINASE INCREASED [None]
  - ELECTROCARDIOGRAM ST SEGMENT ELEVATION [None]
  - SINUS ARRHYTHMIA [None]
  - MUSCULAR WEAKNESS [None]
  - CHOKING SENSATION [None]
  - ALANINE AMINOTRANSFERASE INCREASED [None]
  - CARDIAC ENZYMES INCREASED [None]
  - ASPARTATE AMINOTRANSFERASE INCREASED [None]
